FAERS Safety Report 7903550-6 (Version None)
Quarter: 2011Q4

REPORT INFORMATION
  Report Type: 
  Country: None (occurrence: None)
  Receive Date: 20111109
  Receipt Date: 20111109
  Transmission Date: 20120403
  Serious: Yes (Life-Threatening, Hospitalization)
  Sender: FDA-Public Use
  Company Number: None

PATIENT
  Age: 47 Year
  Sex: Female
  Weight: 57.606 kg

DRUGS (19)
  1. ZOFRAN [Concomitant]
  2. CEFOXITIN [Concomitant]
  3. SUBLIMAZE PRESERVATIVE FREE [Concomitant]
  4. ZEMURON [Concomitant]
  5. NORMADYNE [Concomitant]
  6. LACTATED RINGER'S [Concomitant]
  7. VERSED [Concomitant]
  8. PLAK VAC MOUTH WASH [Suspect]
     Indication: ACUTE RESPIRATORY FAILURE
     Dates: start: 20110928, end: 20111021
  9. PLAK VAC MOUTH WASH [Suspect]
     Indication: MYOCARDIAL INFARCTION
     Dates: start: 20110928, end: 20111021
  10. PLAK VAC MOUTH WASH [Suspect]
     Indication: MECHANICAL VENTILATION
     Dates: start: 20110928, end: 20111021
  11. SODIUM CHLORIDE [Concomitant]
  12. ATIVAN [Concomitant]
  13. DIPRIVAN [Concomitant]
  14. XYLOCAINE [Concomitant]
  15. PEPCID [Concomitant]
  16. SUCCINCLCHOLINE [Concomitant]
  17. NORCURON [Concomitant]
  18. MORPHINE SULFATE [Concomitant]
  19. DEMOROL [Concomitant]

REACTIONS (7)
  - LUNG INFILTRATION [None]
  - PYREXIA [None]
  - TRANSMISSION OF AN INFECTIOUS AGENT VIA A MEDICINAL PRODUCT [None]
  - LEUKOCYTOSIS [None]
  - STENOTROPHOMONAS TEST POSITIVE [None]
  - BURKHOLDERIA TEST POSITIVE [None]
  - STENOTROPHOMONAS INFECTION [None]
